FAERS Safety Report 11416422 (Version 2)
Quarter: 2015Q3

REPORT INFORMATION
  Report Type: Spontaneous
  Country: GB (occurrence: GB)
  Receive Date: 20150825
  Receipt Date: 20150910
  Transmission Date: 20151125
  Serious: Yes (Hospitalization)
  Sender: FDA-Public Use
  Company Number: GB-TEVA-586993ACC

PATIENT
  Age: 8 Year
  Sex: Male
  Weight: 23.2 kg

DRUGS (6)
  1. RISPERIDONE. [Suspect]
     Active Substance: RISPERIDONE
     Dosage: .5 MILLIGRAM DAILY; 1MG/ML
     Route: 048
  2. RISPERIDONE. [Suspect]
     Active Substance: RISPERIDONE
     Indication: ABNORMAL BEHAVIOUR
     Dosage: .5 MILLIGRAM DAILY;
     Route: 048
     Dates: start: 201507, end: 20150804
  3. SYTRON [Concomitant]
     Dosage: 5 ML DAILY;
     Route: 048
  4. RISPERIDONE. [Suspect]
     Active Substance: RISPERIDONE
     Route: 048
  5. FLUOXETINE [Concomitant]
     Active Substance: FLUOXETINE\FLUOXETINE HYDROCHLORIDE
     Dosage: 30 MILLIGRAM DAILY;
     Route: 048
  6. MELATONIN [Concomitant]
     Active Substance: MELATONIN
     Dosage: 5 MILLIGRAM DAILY; AT NIGHT
     Route: 048

REACTIONS (11)
  - Posture abnormal [Recovering/Resolving]
  - Torticollis [Recovering/Resolving]
  - Blood prolactin increased [Recovering/Resolving]
  - Somnolence [Recovering/Resolving]
  - Posturing [Recovering/Resolving]
  - Muscle rigidity [Recovering/Resolving]
  - Oculogyric crisis [Recovering/Resolving]
  - Dystonia [Recovering/Resolving]
  - Extrapyramidal disorder [Recovering/Resolving]
  - Opisthotonus [Recovering/Resolving]
  - Dyskinesia [Recovering/Resolving]

NARRATIVE: CASE EVENT DATE: 20150803
